FAERS Safety Report 5324555-8 (Version None)
Quarter: 2007Q2

REPORT INFORMATION
  Report Type: 
  Country: None (occurrence: None)
  Receive Date: 20070508
  Receipt Date: 20070420
  Transmission Date: 20071010
  Serious: Yes (Death)
  Sender: FDA-Public Use
  Company Number: 2007EU000886

PATIENT

DRUGS (3)
  1. PROGRAF [Suspect]
     Indication: LIVER TRANSPLANT
     Dosage: 0.08 MG/KG, UNKNOWN/D, UNK
     Dates: start: 20060101
  2. MYCOPHENOLATE MOFETIL [Suspect]
     Indication: LIVER TRANSPLANT
     Dates: start: 20060101
  3. PREDNISONE TAB [Suspect]
     Indication: LIVER TRANSPLANT
     Dosage: 20 MG, UNKNOWN/D, UNK
     Dates: start: 20060101

REACTIONS (7)
  - DISEASE RECURRENCE [None]
  - DRUG INTERACTION [None]
  - DRUG TOXICITY [None]
  - GRAFT DYSFUNCTION [None]
  - HEPATITIS C [None]
  - IMMUNOSUPPRESSION [None]
  - LIVER TRANSPLANT REJECTION [None]
